FAERS Safety Report 9351056 (Version 1)
Quarter: 2013Q2

REPORT INFORMATION
  Report Type: Spontaneous
  Country: IT (occurrence: IT)
  Receive Date: 20130617
  Receipt Date: 20130617
  Transmission Date: 20140414
  Serious: Yes (Hospitalization)
  Sender: FDA-Public Use
  Company Number: IT-BAYER-2013-071411

PATIENT
  Age: 30 Year
  Sex: Female

DRUGS (3)
  1. YAZ [Suspect]
     Indication: DYSMENORRHOEA
     Dosage: UNK
     Route: 048
     Dates: start: 20110101, end: 20130411
  2. OKI [Suspect]
     Indication: HEADACHE
     Dosage: DAILY DOSE 80 MG
     Route: 048
     Dates: start: 20130411, end: 20130411
  3. PARACETAMOL WITH CODEINE PHOSPHATE [Suspect]
     Indication: HEADACHE
     Dosage: DAILY DOSE 1 DF
     Route: 048
     Dates: start: 20130413, end: 20130413

REACTIONS (3)
  - Erythema [Recovered/Resolved]
  - Oedema [Recovered/Resolved]
  - Adverse drug reaction [Recovered/Resolved]
